FAERS Safety Report 7509353-9 (Version None)
Quarter: 2011Q2

REPORT INFORMATION
  Report Type: 
  Country: None (occurrence: None)
  Receive Date: 20110527
  Receipt Date: 20110523
  Transmission Date: 20111010
  Serious: Yes (Death)
  Sender: FDA-Public Use
  Company Number: PHHY2011NO28561

PATIENT
  Sex: Male

DRUGS (5)
  1. SINGULAIR [Concomitant]
     Dosage: 10 MG, DAILY
  2. HEROIN [Suspect]
     Dosage: UNK UKN, UNK
  3. ZOLOFT [Concomitant]
     Dosage: 50 MG, DAILY
  4. RITALIN [Suspect]
     Indication: ATTENTION DEFICIT/HYPERACTIVITY DISORDER
     Dosage: 10 MG, BID
     Dates: start: 20040101
  5. SYMBICORT [Concomitant]
     Dosage: UNK UKN, UNK

REACTIONS (1)
  - OVERDOSE [None]
